FAERS Safety Report 24427392 (Version 1)
Quarter: 2024Q4

REPORT INFORMATION
  Report Type: Spontaneous
  Country: US (occurrence: None)
  Receive Date: 20241011
  Receipt Date: 20241011
  Transmission Date: 20250115
  Serious: Yes (Other)
  Sender: Public
  Company Number: None

PATIENT
  Age: 35 Year
  Sex: Female
  Weight: 56.25 kg

DRUGS (6)
  1. MONISTAT 3 [Suspect]
     Active Substance: MICONAZOLE NITRATE
     Indication: Vulvovaginal mycotic infection
     Dates: start: 20241009, end: 20241010
  2. ACETAZOLAMIDE [Concomitant]
     Active Substance: ACETAZOLAMIDE
  3. ELIQUIS [Concomitant]
     Active Substance: APIXABAN
  4. PANTOPRAZOLE [Concomitant]
     Active Substance: PANTOPRAZOLE
  5. Magnesium threonate [Concomitant]
  6. RIBOFLAVIN [Concomitant]
     Active Substance: RIBOFLAVIN

REACTIONS (5)
  - Dizziness [None]
  - Presyncope [None]
  - Nausea [None]
  - Abdominal pain upper [None]
  - Heart rate increased [None]

NARRATIVE: CASE EVENT DATE: 20241010
